FAERS Safety Report 24083142 (Version 2)
Quarter: 2024Q3

REPORT INFORMATION
  Report Type: Report from Study
  Country: DE (occurrence: DE)
  Receive Date: 20240712
  Receipt Date: 20240725
  Transmission Date: 20241017
  Serious: No
  Sender: NOVARTIS
  Company Number: DE-002147023-NVSC2024DE139179

PATIENT
  Age: 44 Year
  Sex: Female
  Weight: 71 kg

DRUGS (2)
  1. COSENTYX [Suspect]
     Active Substance: SECUKINUMAB
     Indication: Hidradenitis
     Dosage: 300 MG, ONCE/SINGLE
     Route: 058
     Dates: start: 20240618, end: 20240618
  2. COSENTYX [Suspect]
     Active Substance: SECUKINUMAB
     Dosage: 300 MG, ONCE/SINGLE
     Route: 058
     Dates: start: 20240625, end: 20240625

REACTIONS (2)
  - Swelling face [Recovered/Resolved]
  - Herpes simplex [Recovered/Resolved]

NARRATIVE: CASE EVENT DATE: 20240629
